FAERS Safety Report 8677641 (Version 3)
Quarter: 2012Q4

REPORT INFORMATION
  Report Type: 
  Country: FR (occurrence: FR)
  Receive Date: 20120723
  Receipt Date: 20121231
  Transmission Date: 20130627
  Serious: Yes (Other)
  Sender: FDA-Public Use
  Company Number: FR-009507513-2012SP034242

PATIENT
  Sex: Female

DRUGS (1)
  1. VIRAFERONPEG [Suspect]
     Indication: PRODUCT USED FOR UNKNOWN INDICATION

REACTIONS (2)
  - Injury associated with device [Unknown]
  - Accidental exposure to product [Unknown]
